FAERS Safety Report 6894923-1 (Version None)
Quarter: 2010Q3

REPORT INFORMATION
  Report Type: 
  Country: None (occurrence: None)
  Receive Date: 20100802
  Receipt Date: 20100721
  Transmission Date: 20110219
  Serious: Yes (Hospitalization)
  Sender: FDA-Public Use
  Company Number: US-ROCHE-717186

PATIENT
  Sex: Male
  Weight: 66.1 kg

DRUGS (18)
  1. BEVACIZUMAB [Suspect]
     Indication: NON-SMALL CELL LUNG CANCER
     Dosage: D-14 AND D1Q21D
     Route: 065
     Dates: start: 20100528, end: 20100702
  2. PACLITAXEL [Suspect]
     Indication: NON-SMALL CELL LUNG CANCER
     Dosage: FREQUENCY: DAY 1, DAY 8 AND DAY 15
     Route: 065
     Dates: start: 20100611, end: 20100716
  3. CARBOPLATIN [Suspect]
     Indication: NON-SMALL CELL LUNG CANCER
     Dosage: D1 Q 21 DAYS
     Route: 065
     Dates: start: 20100611, end: 20100702
  4. ATIVAN [Concomitant]
  5. BACTRIM [Concomitant]
  6. COMPAZINE [Concomitant]
  7. DECADRON [Concomitant]
  8. FUROSEMIDE [Concomitant]
  9. LACTULOSE [Concomitant]
  10. MARINOL [Concomitant]
  11. METHYLPHENIDATE HCL [Concomitant]
  12. OMEPRAZOLE [Concomitant]
  13. OXYCODONE HCL [Concomitant]
  14. POTASSIUM CHLORIDE [Concomitant]
  15. OXYCONTIN [Concomitant]
  16. SEROQUEL [Concomitant]
  17. TRAZODONE [Concomitant]
  18. ZOFRAN [Concomitant]

REACTIONS (2)
  - FAILURE TO THRIVE [None]
  - PULMONARY EMBOLISM [None]
